FAERS Safety Report 9452961 (Version 2)
Quarter: 2013Q3

REPORT INFORMATION
  Report Type: Spontaneous
  Country: ZA (occurrence: ZA)
  Receive Date: 20130812
  Receipt Date: 20130918
  Transmission Date: 20140515
  Serious: Yes (Hospitalization, Other)
  Sender: FDA-Public Use
  Company Number: ZA-ASTELLAS-2013EU006838

PATIENT
  Age: 13 Year
  Sex: Female

DRUGS (5)
  1. TACROLIMUS SYSTEMIC [Suspect]
     Indication: IMMUNOSUPPRESSION
     Dosage: UNK
     Route: 065
  2. AZATHIOPRINE [Suspect]
     Indication: IMMUNOSUPPRESSION
     Dosage: UNK
     Route: 065
  3. PREDNISONE [Suspect]
     Indication: IMMUNOSUPPRESSION
     Dosage: UNK
     Route: 065
  4. BASILIXIMAB [Concomitant]
     Indication: IMMUNOSUPPRESSION
     Dosage: UNK
     Route: 065
  5. METHYLPREDNISOLONE [Concomitant]
     Indication: IMMUNOSUPPRESSION
     Dosage: UNK
     Route: 065

REACTIONS (11)
  - Transplant rejection [Unknown]
  - Cytomegalovirus infection [Unknown]
  - Klebsiella sepsis [Unknown]
  - Hyperglycaemia [Unknown]
  - Intraocular pressure increased [Unknown]
  - Hypertension [Unknown]
  - Renal impairment [Recovering/Resolving]
  - Klebsiella infection [Unknown]
  - Urinary tract infection bacterial [Unknown]
  - Histiocytosis haematophagic [Unknown]
  - Microsporidia infection [Recovering/Resolving]
